FAERS Safety Report 13029458 (Version 1)
Quarter: 2016Q4

REPORT INFORMATION
  Report Type: Spontaneous
  Country: DE (occurrence: DE)
  Receive Date: 20161215
  Receipt Date: 20161215
  Transmission Date: 20170207
  Serious: Yes (Hospitalization, Other)
  Sender: FDA-Public Use
  Company Number: DE-009507513-1612DEU005953

PATIENT
  Age: 86 Year
  Sex: Female

DRUGS (1)
  1. PEMBROLIZUMAB. [Suspect]
     Active Substance: PEMBROLIZUMAB
     Indication: MALIGNANT MELANOMA STAGE IV
     Dosage: UNK
     Dates: start: 20160411

REACTIONS (7)
  - Craniocerebral injury [Recovered/Resolved]
  - Thoracic vertebral fracture [Recovered/Resolved]
  - Pulmonary embolism [Recovered/Resolved]
  - Colitis [Recovered/Resolved]
  - Humerus fracture [Recovered/Resolved]
  - Dizziness [Recovered/Resolved]
  - Lumbar vertebral fracture [Recovered/Resolved]

NARRATIVE: CASE EVENT DATE: 20160414
